FAERS Safety Report 18537834 (Version 2)
Quarter: 2020Q4

REPORT INFORMATION
  Report Type: Spontaneous
  Country: US (occurrence: US)
  Receive Date: 20201123
  Receipt Date: 20201209
  Transmission Date: 20210114
  Serious: No
  Sender: FDA-Public Use
  Company Number: US-SUNOVION-2020SUN003436

PATIENT
  Age: 80 Year
  Sex: Female

DRUGS (1)
  1. KYNMOBI [Suspect]
     Active Substance: APOMORPHINE HYDROCHLORIDE
     Dosage: 10 MG
     Route: 060

REACTIONS (5)
  - Anxiety [Unknown]
  - Feeling drunk [Recovered/Resolved]
  - Sedation [Recovered/Resolved]
  - Fear [Unknown]
  - Dizziness [Recovered/Resolved]
